FAERS Safety Report 5877969-1 (Version None)
Quarter: 2008Q3

REPORT INFORMATION
  Report Type: 
  Country: None (occurrence: None)
  Receive Date: 20080911
  Receipt Date: 20080902
  Transmission Date: 20090109
  Serious: Yes (Other)
  Sender: FDA-Public Use
  Company Number: US-BRISTOL-MYERS SQUIBB COMPANY-14320394

PATIENT

DRUGS (4)
  1. CISPLATIN [Suspect]
     Indication: MEDULLOBLASTOMA
  2. CYCLOPHOSPHAMIDE [Suspect]
     Indication: MEDULLOBLASTOMA
  3. VINCRISTINE SULFATE [Suspect]
     Indication: MEDULLOBLASTOMA
  4. AMIFOSTINE [Suspect]
     Indication: MEDULLOBLASTOMA
     Dosage: PER DOSE

REACTIONS (5)
  - GLOMERULAR FILTRATION RATE DECREASED [None]
  - OSTEOMYELITIS [None]
  - OTOTOXICITY [None]
  - SEPSIS [None]
  - THROMBOCYTOPENIA [None]
